FAERS Safety Report 19021277 (Version 1)
Quarter: 2021Q1

REPORT INFORMATION
  Report Type: Report from Study
  Country: US (occurrence: US)
  Receive Date: 20210317
  Receipt Date: 20210317
  Transmission Date: 20210420
  Serious: Yes (Other)
  Sender: FDA-Public Use
  Company Number: US-TAKEDA-US201912641

PATIENT
  Age: 68 Year
  Sex: Male

DRUGS (8)
  1. TEDUGLUTIDE [Suspect]
     Active Substance: TEDUGLUTIDE
     Indication: SHORT-BOWEL SYNDROME
     Dosage: 2.5 MILLIGRAM, QD
     Route: 058
     Dates: start: 20190220
  2. TEDUGLUTIDE [Suspect]
     Active Substance: TEDUGLUTIDE
     Dosage: 0.25 UNK, QD
     Route: 058
     Dates: start: 20190225
  3. TEDUGLUTIDE [Suspect]
     Active Substance: TEDUGLUTIDE
     Dosage: 0.25 UNK, QD
     Route: 058
     Dates: start: 20190225
  4. TEDUGLUTIDE [Suspect]
     Active Substance: TEDUGLUTIDE
     Dosage: 0.25 UNK, QD
     Route: 058
     Dates: start: 20190225
  5. TEDUGLUTIDE [Suspect]
     Active Substance: TEDUGLUTIDE
     Indication: SHORT-BOWEL SYNDROME
     Dosage: 2.5 MILLIGRAM, QD
     Route: 058
     Dates: start: 20190220
  6. TEDUGLUTIDE [Suspect]
     Active Substance: TEDUGLUTIDE
     Dosage: 0.25 UNK, QD
     Route: 058
     Dates: start: 20190225
  7. TEDUGLUTIDE [Suspect]
     Active Substance: TEDUGLUTIDE
     Indication: SHORT-BOWEL SYNDROME
     Dosage: 2.5 MILLIGRAM, QD
     Route: 058
     Dates: start: 20190220
  8. TEDUGLUTIDE [Suspect]
     Active Substance: TEDUGLUTIDE
     Indication: SHORT-BOWEL SYNDROME
     Dosage: 2.5 MILLIGRAM, QD
     Route: 058
     Dates: start: 20190220

REACTIONS (8)
  - Oedema peripheral [Unknown]
  - Prostatomegaly [Unknown]
  - Restless legs syndrome [Not Recovered/Not Resolved]
  - Abdominal pain [Unknown]
  - Product dose omission issue [Recovered/Resolved]
  - Urinary tract infection [Unknown]
  - Arthralgia [Unknown]
  - Flatulence [Unknown]

NARRATIVE: CASE EVENT DATE: 201904
